FAERS Safety Report 11928705 (Version 1)
Quarter: 2016Q1

REPORT INFORMATION
  Report Type: Spontaneous
  Country: US (occurrence: US)
  Receive Date: 20160119
  Receipt Date: 20160119
  Transmission Date: 20160526
  Serious: No
  Sender: FDA-Public Use
  Company Number: US-B.I. PHARMACEUTICALS,INC./RIDGEFIELD-2016-BI-01204BP

PATIENT
  Age: 69 Year
  Sex: Female

DRUGS (1)
  1. DULCOGAS [Suspect]
     Active Substance: DIMETHICONE
     Indication: FLATULENCE
     Dosage: 250 MG
     Route: 048
     Dates: start: 201512, end: 201512

REACTIONS (1)
  - Drug ineffective [Recovered/Resolved]

NARRATIVE: CASE EVENT DATE: 201512
